FAERS Safety Report 13556776 (Version 1)
Quarter: 2017Q2

REPORT INFORMATION
  Report Type: Spontaneous
  Country: US (occurrence: US)
  Receive Date: 20170517
  Receipt Date: 20170517
  Transmission Date: 20170830
  Serious: No
  Sender: FDA-Public Use
  Company Number: None

PATIENT
  Age: 62 Year
  Sex: Female

DRUGS (1)
  1. FORTEO [Suspect]
     Active Substance: TERIPARATIDE
     Indication: OSTEOPOROSIS
     Route: 058
     Dates: start: 20160614

REACTIONS (5)
  - Bone pain [None]
  - Arthralgia [None]
  - Exostosis [None]
  - Pain in extremity [None]
  - Spinal pain [None]

NARRATIVE: CASE EVENT DATE: 20160630
